FAERS Safety Report 10409371 (Version 1)
Quarter: 2014Q2

REPORT INFORMATION
  Report Type: Spontaneous
  Country: US (occurrence: None)
  Receive Date: 20140604
  Receipt Date: 20140604
  Transmission Date: 20141212
  Serious: Yes (Hospitalization)
  Sender: FDA-Public Use
  Company Number: 163-POMAL-14032690

PATIENT
  Age: 78 Year
  Sex: Female

DRUGS (5)
  1. POMALYST (POMALIDOMIDE) (2 MILLIGRAM, CAPSULES) [Suspect]
     Indication: PLASMA CELL MYELOMA
     Dosage: 21 IN 21D
     Route: 048
     Dates: start: 20140217, end: 2014
  2. ASPIRIN (ACETYLSALICYLIC ACID) [Concomitant]
  3. CALCIUM (CALCIUM) [Concomitant]
  4. CLARITIN (LORATADINE) [Concomitant]
  5. NEXIUM (ESOMEPRAZOLE) [Concomitant]

REACTIONS (2)
  - Pneumonia [None]
  - Epistaxis [None]
